FAERS Safety Report 18044961 (Version 1)
Quarter: 2020Q3

REPORT INFORMATION
  Report Type: Spontaneous
  Country: US (occurrence: US)
  Receive Date: 20200720
  Receipt Date: 20200720
  Transmission Date: 20201103
  Serious: Yes (Other)
  Sender: FDA-Public Use
  Company Number: US-PURDUE-USA-2020-0157991

PATIENT
  Sex: Female

DRUGS (2)
  1. BENADRYL [Suspect]
     Active Substance: DIPHENHYDRAMINE HYDROCHLORIDE
     Indication: PRODUCT USED FOR UNKNOWN INDICATION
     Route: 065
  2. OXYCODONE HYDROCHLORIDE. [Suspect]
     Active Substance: OXYCODONE HYDROCHLORIDE
     Indication: PAIN
     Dosage: 30 MG, Q6H PRN
     Route: 048
     Dates: start: 2012

REACTIONS (9)
  - Malaise [Not Recovered/Not Resolved]
  - Swollen tongue [Not Recovered/Not Resolved]
  - Lip blister [Not Recovered/Not Resolved]
  - Spinal operation [Unknown]
  - Rotator cuff repair [Unknown]
  - Oral discomfort [Not Recovered/Not Resolved]
  - Fear [Not Recovered/Not Resolved]
  - Product size issue [Unknown]
  - Headache [Unknown]

NARRATIVE: CASE EVENT DATE: 2015
